FAERS Safety Report 13263757 (Version 4)
Quarter: 2021Q1

REPORT INFORMATION
  Report Type: Spontaneous
  Country: US (occurrence: US)
  Receive Date: 20170223
  Receipt Date: 20210120
  Transmission Date: 20210419
  Serious: Yes (Other)
  Sender: FDA-Public Use
  Company Number: US-PFIZER INC-2017072209

PATIENT
  Age: 51 Year
  Sex: Female
  Weight: 108.8 kg

DRUGS (2)
  1. CELEBREX [Suspect]
     Active Substance: CELECOXIB
     Indication: RHEUMATOID ARTHRITIS
     Dosage: 200 MG, 2X/DAY
     Route: 048
     Dates: end: 20170209
  2. CELEBREX [Suspect]
     Active Substance: CELECOXIB
     Dosage: UNK, 1X/DAY

REACTIONS (11)
  - Staphylococcal infection [Unknown]
  - Diabetic ulcer [Unknown]
  - Diabetes mellitus [Unknown]
  - Intentional product misuse [Unknown]
  - Wound complication [Unknown]
  - Diabetic wound [Unknown]
  - Localised infection [Unknown]
  - Skin ulcer [Unknown]
  - Gait disturbance [Unknown]
  - Wound [Unknown]
  - Hip fracture [Unknown]

NARRATIVE: CASE EVENT DATE: 20170211
